FAERS Safety Report 12772382 (Version 5)
Quarter: 2018Q1

REPORT INFORMATION
  Report Type: Report from Study
  Country: ES (occurrence: ES)
  Receive Date: 20160922
  Receipt Date: 20180201
  Transmission Date: 20180508
  Serious: Yes (Hospitalization)
  Sender: FDA-Public Use
  Company Number: ES-ROCHE-1832409

PATIENT
  Age: 79 Year
  Sex: Male
  Weight: 94 kg

DRUGS (11)
  1. DEXCHLORPHENIRAMINE [Concomitant]
     Active Substance: DEXCHLORPHENIRAMINE
     Indication: PREMEDICATION
     Route: 042
     Dates: start: 20160530
  2. METHYLPREDNISOLONE. [Concomitant]
     Active Substance: METHYLPREDNISOLONE
     Indication: PREMEDICATION
     Route: 042
     Dates: start: 20160530
  3. GABAPENTINA [Concomitant]
     Active Substance: GABAPENTIN
     Route: 048
     Dates: start: 20161017
  4. PARACETAMOL [Concomitant]
     Active Substance: ACETAMINOPHEN
     Indication: PREMEDICATION
     Route: 042
     Dates: start: 20160530
  5. COSOPT [Concomitant]
     Active Substance: DORZOLAMIDE HYDROCHLORIDE\TIMOLOL MALEATE
     Indication: GLAUCOMA
     Route: 047
     Dates: start: 2001
  6. CHLORAMBUCIL [Suspect]
     Active Substance: CHLORAMBUCIL
     Indication: CHRONIC LYMPHOCYTIC LEUKAEMIA
     Dosage: DATE OF MOST RECENT DOSE OF CHLORAMBUCIL PRIOR TO AE ONSET 22/AUG/2016
     Route: 048
     Dates: start: 20160530
  7. ENALAPRIL/HCT [Concomitant]
     Indication: HYPERTENSION
     Dosage: 20/12.5
     Route: 048
     Dates: start: 20160531, end: 20160926
  8. OBINUTUZUMAB. [Suspect]
     Active Substance: OBINUTUZUMAB
     Indication: CHRONIC LYMPHOCYTIC LEUKAEMIA
     Dosage: DATE OF MOST RECENT DOSE OF OBINUTUZUMAB PRIOR TO ADVERSE EVENT 26/JUL/2016
     Route: 042
     Dates: start: 20160530
  9. CAPOTEN (SPAIN) [Concomitant]
     Indication: HYPERTENSION
     Dosage: 25 TABLET
     Route: 048
  10. AMOXICILLIN/CLAVULANIC ACID [Concomitant]
     Active Substance: AMOXICILLIN\CLAVULANIC ACID
     Indication: ERYSIPELAS
     Dosage: AMOXICILLIN 875/CLAVULANIC ACID 125
     Route: 048
     Dates: start: 20160920, end: 20160926
  11. IRBESARTAN. [Concomitant]
     Active Substance: IRBESARTAN
     Indication: HYPERTENSION
     Route: 048
     Dates: start: 20160927

REACTIONS (1)
  - Herpes zoster [Recovered/Resolved]

NARRATIVE: CASE EVENT DATE: 20160914
